FAERS Safety Report 16161656 (Version 1)
Quarter: 2019Q2

REPORT INFORMATION
  Report Type: Spontaneous
  Country: ID (occurrence: ID)
  Receive Date: 20190405
  Receipt Date: 20190405
  Transmission Date: 20190711
  Serious: Yes (Hospitalization)
  Sender: FDA-Public Use
  Company Number: ID-IPCA LABORATORIES LIMITED-IPC-2019-ID-000380

PATIENT

DRUGS (1)
  1. WARFARIN [Suspect]
     Active Substance: WARFARIN
     Indication: ANTICOAGULANT THERAPY
     Dosage: UNK
     Route: 065

REACTIONS (3)
  - Haematuria [Recovered/Resolved]
  - Haemoglobin decreased [Unknown]
  - International normalised ratio increased [Recovered/Resolved]
